FAERS Safety Report 5369797-0 (Version None)
Quarter: 2007Q2

REPORT INFORMATION
  Report Type: 
  Country: None (occurrence: None)
  Receive Date: 20070621
  Receipt Date: 20070612
  Transmission Date: 20071010
  Serious: Yes (Hospitalization)
  Sender: FDA-Public Use
  Company Number: 233909K07USA

PATIENT
  Age: 59 Year
  Sex: Female
  Weight: 51.7101 kg

DRUGS (5)
  1. REBIF [Suspect]
     Indication: MULTIPLE SCLEROSIS
     Dosage: 44 MCG, 3 IN 1 WEEKS, SUBCUTANEOUS
     Route: 058
     Dates: start: 20050726, end: 20070504
  2. REBIF [Suspect]
     Indication: MULTIPLE SCLEROSIS
     Dosage: 44 MCG, 3 IN 1 WEEKS, SUBCUTANEOUS
     Route: 058
     Dates: start: 20070507
  3. CENTRUM SILVER (CENTRUM SILVER) [Concomitant]
  4. CLARITIN [Concomitant]
  5. NEXIUM [Concomitant]

REACTIONS (12)
  - BURNING SENSATION [None]
  - DIARRHOEA [None]
  - FATIGUE [None]
  - FOOD POISONING [None]
  - HAEMOGLOBIN DECREASED [None]
  - INJECTION SITE BRUISING [None]
  - INJECTION SITE ERYTHEMA [None]
  - INJECTION SITE NODULE [None]
  - INJECTION SITE REACTION [None]
  - INJECTION SITE WARMTH [None]
  - IRRITABLE BOWEL SYNDROME [None]
  - WEIGHT DECREASED [None]
